FAERS Safety Report 7694554-X (Version None)
Quarter: 2011Q3

REPORT INFORMATION
  Report Type: 
  Country: None (occurrence: None)
  Receive Date: 20110819
  Receipt Date: 20110812
  Transmission Date: 20111222
  Serious: Yes (Other)
  Sender: FDA-Public Use
  Company Number: US-US-EMD SERONO, INC.-7076101

PATIENT
  Sex: Female

DRUGS (5)
  1. PROVIGIL [Concomitant]
     Indication: FATIGUE
     Dates: start: 20100524
  2. REBIF [Suspect]
     Indication: MULTIPLE SCLEROSIS
     Route: 058
     Dates: start: 20110324
  3. BACLOFEN [Concomitant]
     Indication: MUSCLE SPASTICITY
     Dates: start: 20101115
  4. MIRAPEX [Concomitant]
     Dates: start: 20110412
  5. SIMVASTATIN [Concomitant]
     Dates: start: 20100524

REACTIONS (2)
  - RHEUMATOID ARTHRITIS [None]
  - ALOPECIA [None]
